FAERS Safety Report 23588154 (Version 1)
Quarter: 2024Q1

REPORT INFORMATION
  Report Type: Spontaneous
  Country: IT (occurrence: IT)
  Receive Date: 20240302
  Receipt Date: 20240302
  Transmission Date: 20240410
  Serious: Yes (Other)
  Sender: FDA-Public Use
  Company Number: IT-OTSUKA-2015_001425

PATIENT
  Age: 40 Year
  Sex: Male

DRUGS (37)
  1. ARIPIPRAZOLE [Suspect]
     Active Substance: ARIPIPRAZOLE
     Indication: Schizophrenia
     Dosage: 400 MG, QMO
     Route: 030
     Dates: start: 20150415
  2. ARIPIPRAZOLE [Suspect]
     Active Substance: ARIPIPRAZOLE
     Dosage: 15 MG
     Route: 048
     Dates: start: 201805, end: 2018
  3. ARIPIPRAZOLE [Suspect]
     Active Substance: ARIPIPRAZOLE
     Dosage: 20 MG, QD
     Route: 065
     Dates: start: 201805, end: 2018
  4. ARIPIPRAZOLE [Suspect]
     Active Substance: ARIPIPRAZOLE
     Indication: Bipolar I disorder
     Dosage: 5 MG, 1X/DAY
     Route: 065
     Dates: start: 201709
  5. ADEMETIONINE [Suspect]
     Active Substance: ADEMETIONINE
     Indication: Bipolar I disorder
     Dosage: UNK
     Route: 065
  6. AMITRIPTYLINE HYDROCHLORIDE [Suspect]
     Active Substance: AMITRIPTYLINE HYDROCHLORIDE
     Indication: Bipolar I disorder
     Dosage: UNK
     Route: 065
  7. DULOXETINE HYDROCHLORIDE [Suspect]
     Active Substance: DULOXETINE HYDROCHLORIDE
     Indication: Bipolar I disorder
     Dosage: UNK
     Route: 065
  8. DELORAZEPAM [Suspect]
     Active Substance: DELORAZEPAM
     Indication: Bipolar I disorder
     Dosage: UNK
     Route: 065
  9. ESCITALOPRAM OXALATE [Suspect]
     Active Substance: ESCITALOPRAM OXALATE
     Indication: Bipolar I disorder
     Dosage: UNK
     Route: 065
  10. FLUOXETINE HYDROCHLORIDE [Suspect]
     Active Substance: FLUOXETINE HYDROCHLORIDE
     Indication: Bipolar I disorder
     Dosage: UNK
     Route: 065
  11. LORAZEPAM [Suspect]
     Active Substance: LORAZEPAM
     Indication: Bipolar I disorder
     Dosage: UNK
     Route: 065
  12. LAMOTRIGINE [Suspect]
     Active Substance: LAMOTRIGINE
     Indication: Bipolar I disorder
     Dosage: UNK
     Route: 065
  13. OLANZAPINE [Suspect]
     Active Substance: OLANZAPINE
     Indication: Bipolar I disorder
     Dosage: UNK
     Route: 065
  14. PERPHENAZINE [Suspect]
     Active Substance: PERPHENAZINE
     Indication: Bipolar I disorder
     Dosage: UNK
     Route: 065
  15. QUETIAPINE FUMARATE [Suspect]
     Active Substance: QUETIAPINE FUMARATE
     Indication: Bipolar I disorder
     Dosage: 300 MG, DAILY
     Route: 065
     Dates: start: 201709
  16. QUETIAPINE [Suspect]
     Active Substance: QUETIAPINE
     Indication: Bipolar disorder
     Dosage: 300 MG, QD
     Route: 065
  17. VALPROATE SODIUM [Suspect]
     Active Substance: VALPROATE SODIUM
     Indication: Bipolar I disorder
     Dosage: 1500 MG, QD
     Route: 065
     Dates: start: 201709
  18. VALPROATE SODIUM [Suspect]
     Active Substance: VALPROATE SODIUM
     Dosage: UNK
     Route: 065
     Dates: start: 201805
  19. VENLAFAXINE [Suspect]
     Active Substance: VENLAFAXINE HYDROCHLORIDE
     Indication: Bipolar I disorder
     Dosage: UNK
     Route: 065
  20. VORTIOXETINE [Suspect]
     Active Substance: VORTIOXETINE
     Indication: Bipolar I disorder
     Dosage: UNK
     Route: 065
  21. ADEMETIONINE [Concomitant]
     Active Substance: ADEMETIONINE
     Indication: Bipolar I disorder
     Dosage: UNK
     Route: 065
  22. AMITRIPTYLINE [Concomitant]
     Active Substance: AMITRIPTYLINE
     Indication: Bipolar I disorder
     Dosage: UNK
     Route: 065
  23. DELORAZEPAM [Concomitant]
     Active Substance: DELORAZEPAM
     Indication: Bipolar I disorder
     Dosage: UNK
     Route: 065
  24. DULOXETINE [Concomitant]
     Active Substance: DULOXETINE
     Indication: Bipolar I disorder
     Dosage: UNK
     Route: 065
  25. ESCITALOPRAM [Concomitant]
     Active Substance: ESCITALOPRAM OXALATE
     Indication: Bipolar I disorder
     Dosage: UNK
     Route: 065
  26. FLUOXETINE [Concomitant]
     Active Substance: FLUOXETINE HYDROCHLORIDE
     Indication: Bipolar I disorder
     Dosage: UNK
     Route: 065
  27. HALDOL [Concomitant]
     Active Substance: HALOPERIDOL
     Indication: Bipolar I disorder
     Dosage: UNK
     Route: 065
  28. LAMOTRIGINE [Concomitant]
     Active Substance: LAMOTRIGINE
     Indication: Bipolar I disorder
     Dosage: UNK
     Route: 065
  29. LITHIUM [Concomitant]
     Active Substance: LITHIUM
     Indication: Bipolar I disorder
     Dosage: UNK
     Route: 065
  30. LORAZEPAM [Concomitant]
     Active Substance: LORAZEPAM
     Indication: Bipolar I disorder
     Dosage: UNK
     Route: 065
  31. OLANZAPINE [Concomitant]
     Active Substance: OLANZAPINE
     Indication: Bipolar I disorder
     Dosage: UNK
     Route: 065
  32. PERPHENAZINE [Concomitant]
     Active Substance: PERPHENAZINE
     Indication: Bipolar I disorder
     Dosage: UNK
     Route: 065
  33. QUETIAPINE [Concomitant]
     Active Substance: QUETIAPINE
     Indication: Hypomania
     Dosage: DOSE: 300 (UNIT NOT STATED)
     Route: 065
  34. VALPROIC ACID [Concomitant]
     Active Substance: VALPROIC ACID
     Indication: Bipolar I disorder
     Dosage: 1500 MG, QD
     Route: 065
  35. VALPROIC ACID [Concomitant]
     Active Substance: VALPROIC ACID
     Indication: Hypomania
     Dosage: DOSE 1500 (UNIT NOT STATED)
     Route: 065
     Dates: start: 201709
  36. VENLAFAXINE [Concomitant]
     Active Substance: VENLAFAXINE HYDROCHLORIDE
     Indication: Bipolar I disorder
     Dosage: UNK
     Route: 065
  37. VORTIOXETINE [Concomitant]
     Active Substance: VORTIOXETINE
     Indication: Bipolar I disorder
     Dosage: UNK
     Route: 065

REACTIONS (6)
  - Gambling disorder [Recovered/Resolved]
  - Abnormal behaviour [Not Recovered/Not Resolved]
  - Antisocial behaviour [Not Recovered/Not Resolved]
  - Underdose [Unknown]
  - Drug ineffective [Unknown]
  - Therapeutic response decreased [Unknown]

NARRATIVE: CASE EVENT DATE: 20150510
